FAERS Safety Report 9733758 (Version 1)
Quarter: 2013Q4

REPORT INFORMATION
  Report Type: Spontaneous
  Country: IT (occurrence: IT)
  Receive Date: 20131205
  Receipt Date: 20131205
  Transmission Date: 20140711
  Serious: Yes (Other)
  Sender: FDA-Public Use
  Company Number: IT-TEVA-447010ISR

PATIENT
  Age: 41 Year
  Sex: Male
  Weight: 92 kg

DRUGS (3)
  1. FLUOROURACILE TEVA [Suspect]
     Indication: COLON NEOPLASM
     Dosage: 700 MILLIGRAM DAILY;
     Route: 040
     Dates: start: 20130717
  2. FLUOROURACILE TEVA [Suspect]
     Dosage: 1100 MILLIGRAM DAILY;
     Route: 041
     Dates: start: 20130717
  3. ELOXATIN [Suspect]
     Indication: COLON NEOPLASM
     Dosage: 150 MILLIGRAM DAILY; CONCENTRATE FOR SOLUTION FOR INTRAVENOUS INFUSION
     Route: 041
     Dates: start: 20130717

REACTIONS (2)
  - Hyperpyrexia [Recovered/Resolved]
  - Tremor [Recovered/Resolved]
